FAERS Safety Report 6765468-4 (Version None)
Quarter: 2010Q2

REPORT INFORMATION
  Report Type: 
  Country: None (occurrence: None)
  Receive Date: 20100611
  Receipt Date: 20100521
  Transmission Date: 20101027
  Serious: Yes (Other)
  Sender: FDA-Public Use
  Company Number: PHEH2010US03322

PATIENT
  Sex: Female

DRUGS (5)
  1. ESTRADERM [Suspect]
     Indication: MENOPAUSE
     Dosage: 0.1 MG/DAY
     Route: 062
  2. VIVELLE-DOT [Suspect]
     Indication: MENOPAUSE
     Dosage: 0.1 MG/DAY
     Route: 062
  3. ASPIRIN [Concomitant]
     Dosage: UNK
  4. ANTIHISTAMINES [Concomitant]
     Indication: HYPERSENSITIVITY
  5. DIURETICS [Concomitant]

REACTIONS (4)
  - ALOPECIA [None]
  - DRUG INEFFECTIVE [None]
  - HYSTERECTOMY [None]
  - INSOMNIA [None]
